FAERS Safety Report 21974343 (Version 1)
Quarter: 2023Q1

REPORT INFORMATION
  Report Type: Spontaneous
  Country: CN (occurrence: CN)
  Receive Date: 20230209
  Receipt Date: 20230209
  Transmission Date: 20230418
  Serious: Yes (Other)
  Sender: FDA-Public Use
  Company Number: CN-009507513-2302CHN001674

PATIENT
  Age: 53 Year
  Sex: Male
  Weight: 52.5 kg

DRUGS (10)
  1. KEYTRUDA [Suspect]
     Active Substance: PEMBROLIZUMAB
     Indication: Gastric cancer
     Dosage: 200MG, ONCE (1/DAY)
     Route: 041
     Dates: start: 20221128, end: 20221128
  2. DOCETAXEL [Suspect]
     Active Substance: DOCETAXEL
     Indication: Gastric cancer
     Dosage: 120MG, ONCE (1/DAY)
     Route: 041
     Dates: start: 20221128, end: 20221128
  3. OXALIPLATIN [Suspect]
     Active Substance: OXALIPLATIN
     Indication: Gastric cancer
     Dosage: 150MG, ONCE (1/DAY)
     Route: 041
     Dates: start: 20221128, end: 20221128
  4. FLUOROURACIL [Suspect]
     Active Substance: FLUOROURACIL
     Indication: Gastric cancer
     Dosage: 0.75G, ONCE (1/DAY)
     Route: 041
     Dates: start: 20221128, end: 20221128
  5. FLUOROURACIL [Suspect]
     Active Substance: FLUOROURACIL
     Dosage: 3.75G, ONCE (1/DAY). PUMP INJECTION (ALSO REPORTED AS ^IVVP^)
     Dates: start: 20221128, end: 20221128
  6. SODIUM CHLORIDE [Concomitant]
     Active Substance: SODIUM CHLORIDE
     Indication: Medication dilution
     Dosage: 250ML, ONCE (1/DAY)
     Route: 041
     Dates: start: 20221128, end: 20221128
  7. SODIUM CHLORIDE [Concomitant]
     Active Substance: SODIUM CHLORIDE
     Dosage: 100ML, ONCE (1/DAY)
     Route: 041
     Dates: start: 20221128, end: 20221128
  8. SODIUM CHLORIDE [Concomitant]
     Active Substance: SODIUM CHLORIDE
     Dosage: 250ML, ONCE (1/DAY)
     Dates: start: 20221128, end: 20221128
  9. SODIUM CHLORIDE [Concomitant]
     Active Substance: SODIUM CHLORIDE
     Dosage: 100ML, ONCE (1/DAY)
     Route: 041
     Dates: start: 20221128, end: 20221128
  10. DEXTROSE [Concomitant]
     Active Substance: DEXTROSE
     Indication: Medication dilution
     Dosage: 250ML, ONCE (1/DAY)
     Route: 041
     Dates: start: 20221128, end: 20221128

REACTIONS (3)
  - White blood cell count decreased [Recovering/Resolving]
  - Neutrophil count decreased [Recovering/Resolving]
  - Product use in unapproved indication [Unknown]

NARRATIVE: CASE EVENT DATE: 20221128
